FAERS Safety Report 13984547 (Version 1)
Quarter: 2017Q3

REPORT INFORMATION
  Report Type: Spontaneous
  Country: RU (occurrence: RU)
  Receive Date: 20170918
  Receipt Date: 20170918
  Transmission Date: 20171128
  Serious: Yes (Life-Threatening)
  Sender: FDA-Public Use
  Company Number: PHHY2017RU137206

PATIENT
  Age: 14 Year
  Sex: Female
  Weight: 56 kg

DRUGS (8)
  1. MEROPENEM. [Concomitant]
     Active Substance: MEROPENEM
     Indication: FEBRILE NEUTROPENIA
     Route: 042
     Dates: start: 20170718
  2. FAMOTIDINE. [Concomitant]
     Active Substance: FAMOTIDINE
     Indication: GASTRITIS EROSIVE
     Route: 042
     Dates: start: 20170717
  3. ONDANSETRON [Concomitant]
     Active Substance: ONDANSETRON
     Indication: NAUSEA
     Route: 042
     Dates: start: 20170717
  4. CANCIDAS [Concomitant]
     Active Substance: CASPOFUNGIN ACETATE
     Indication: FEBRILE NEUTROPENIA
     Route: 042
     Dates: start: 20170718
  5. EDICIN [Suspect]
     Active Substance: VANCOMYCIN HYDROCHLORIDE
     Indication: FEBRILE NEUTROPENIA
     Dosage: 0.5G TOTAL DAILY DOSE OF 2G
     Route: 042
     Dates: start: 20170722, end: 20170722
  6. OMEPRAZOLE. [Concomitant]
     Active Substance: OMEPRAZOLE
     Indication: GASTRITIS EROSIVE
     Route: 048
     Dates: start: 20170717
  7. REGULON [Concomitant]
     Indication: UTERINE HAEMORRHAGE
     Route: 048
     Dates: start: 20170711
  8. BISEPTOL [Concomitant]
     Active Substance: SULFAMETHOXAZOLE\TRIMETHOPRIM
     Indication: PROPHYLAXIS
     Route: 048

REACTIONS (3)
  - Lip swelling [Recovered/Resolved]
  - Erythema [Recovered/Resolved]
  - Hyperaemia [Recovered/Resolved]

NARRATIVE: CASE EVENT DATE: 20170722
